FAERS Safety Report 25951705 (Version 2)
Quarter: 2025Q4

REPORT INFORMATION
  Report Type: Spontaneous
  Country: US (occurrence: US)
  Receive Date: 20251023
  Receipt Date: 20251127
  Transmission Date: 20260119
  Serious: No
  Sender: GILEAD
  Company Number: US-GILEAD-2025-0733253

PATIENT
  Age: 56 Year
  Sex: Male

DRUGS (2)
  1. LENACAPAVIR [Suspect]
     Active Substance: LENACAPAVIR
     Indication: HIV infection
     Dosage: (INJECTION FORMULATION)
     Route: 065
  2. LENACAPAVIR [Suspect]
     Active Substance: LENACAPAVIR
     Dosage: (INJECTION FORMULATION)
     Route: 065
     Dates: start: 20251017, end: 20251017

REACTIONS (2)
  - Injection site discharge [Recovered/Resolved]
  - Injection site discharge [Recovered/Resolved]

NARRATIVE: CASE EVENT DATE: 20251017
